FAERS Safety Report 17571377 (Version 3)
Quarter: 2020Q2

REPORT INFORMATION
  Report Type: Spontaneous
  Country: US (occurrence: US)
  Receive Date: 20200323
  Receipt Date: 20200520
  Transmission Date: 20200713
  Serious: Yes (Other)
  Sender: FDA-Public Use
  Company Number: US-BAYER-2020-047366

PATIENT
  Age: 40 Year
  Sex: Female
  Weight: 81.63 kg

DRUGS (2)
  1. MIRENA [Suspect]
     Active Substance: LEVONORGESTREL
     Indication: CONTRACEPTION
     Dosage: UNK
  2. MIRENA [Suspect]
     Active Substance: LEVONORGESTREL
     Indication: CONTRACEPTION
     Dosage: 20 ?G PER DAY, CONTINOUS
     Route: 015
     Dates: start: 20180316, end: 20200309

REACTIONS (8)
  - Medical device pain [Not Recovered/Not Resolved]
  - Uterine leiomyoma [None]
  - Device expulsion [None]
  - Menorrhagia [None]
  - Dyspareunia [Not Recovered/Not Resolved]
  - Genital herpes [None]
  - Genital haemorrhage [Not Recovered/Not Resolved]
  - Dysmenorrhoea [None]

NARRATIVE: CASE EVENT DATE: 20180424
